FAERS Safety Report 11152326 (Version 1)
Quarter: 2015Q2

REPORT INFORMATION
  Report Type: Spontaneous
  Country: US (occurrence: US)
  Receive Date: 20150601
  Receipt Date: 20150601
  Transmission Date: 20150821
  Serious: No
  Sender: FDA-Public Use
  Company Number: US-PFIZER INC-2015183136

PATIENT
  Age: 50 Year
  Sex: Male

DRUGS (1)
  1. MEDROL [Suspect]
     Active Substance: METHYLPREDNISOLONE
     Indication: WHEEZING
     Dosage: UNK

REACTIONS (1)
  - Drug ineffective [Unknown]
